FAERS Safety Report 7341392-3 (Version None)
Quarter: 2011Q1

REPORT INFORMATION
  Report Type: 
  Country: None (occurrence: None)
  Receive Date: 20110309
  Receipt Date: 20110302
  Transmission Date: 20110831
  Serious: Yes (Other)
  Sender: FDA-Public Use
  Company Number: US-MERCK-0809USA04316

PATIENT
  Age: 70 Year
  Sex: Female
  Weight: 79 kg

DRUGS (3)
  1. ZOMETA [Suspect]
     Route: 042
     Dates: start: 20050401, end: 20070901
  2. ZOLOFT [Concomitant]
     Indication: FIBROMYALGIA
     Route: 065
     Dates: start: 19990101
  3. FOSAMAX [Suspect]
     Indication: OSTEOPOROSIS PROPHYLAXIS
     Route: 048
     Dates: start: 20010101, end: 20070501

REACTIONS (30)
  - BONE DISORDER [None]
  - TOOTHACHE [None]
  - FALL [None]
  - TOOTH LOSS [None]
  - SPINAL COMPRESSION FRACTURE [None]
  - STOMATITIS [None]
  - OSTEONECROSIS OF JAW [None]
  - BONE DENSITY DECREASED [None]
  - INFECTION [None]
  - HAEMORRHOIDS [None]
  - OSTEOMYELITIS [None]
  - ABDOMINAL ADHESIONS [None]
  - IMPAIRED HEALING [None]
  - ORAL DISORDER [None]
  - ACTINOMYCOSIS [None]
  - BACK PAIN [None]
  - COLITIS [None]
  - DECREASED APPETITE [None]
  - MUCOSAL INFLAMMATION [None]
  - MULTIPLE MYELOMA [None]
  - DIVERTICULUM [None]
  - GINGIVAL BLEEDING [None]
  - POLLAKIURIA [None]
  - MUSCULOSKELETAL PAIN [None]
  - PELVIC FRACTURE [None]
  - BREAST PAIN [None]
  - URINARY TRACT INFECTION [None]
  - PERIODONTITIS [None]
  - CONSTIPATION [None]
  - INSOMNIA [None]
